FAERS Safety Report 9976635 (Version 1)
Quarter: 2014Q1

REPORT INFORMATION
  Report Type: Report from Study
  Country: US (occurrence: US)
  Receive Date: 20140306
  Receipt Date: 20140306
  Transmission Date: 20141002
  Serious: No
  Sender: FDA-Public Use
  Company Number: US-ABBVIE-13P-163-1165948-00

PATIENT
  Sex: Female

DRUGS (8)
  1. HUMIRA [Suspect]
     Indication: CROHN^S DISEASE
  2. PREDNISONE [Concomitant]
     Indication: PRODUCT USED FOR UNKNOWN INDICATION
  3. METOPROLOL [Concomitant]
     Indication: HYPERTENSION
  4. TRIAMTERENE AND HYDROCHLOROTHIAZID [Concomitant]
     Indication: HYPERTENSION
     Dosage: 37.5/25 MILLIGRAMS
  5. SIMVASTATIN [Concomitant]
     Indication: BLOOD CHOLESTEROL INCREASED
  6. SERTRALINE [Concomitant]
     Indication: ANXIETY
  7. OMEPRAZOLE [Concomitant]
     Indication: ABDOMINAL DISCOMFORT
  8. DICYCLOMINE [Concomitant]
     Indication: ABDOMINAL PAIN UPPER

REACTIONS (7)
  - Hypoaesthesia [Not Recovered/Not Resolved]
  - Activities of daily living impaired [Not Recovered/Not Resolved]
  - Joint lock [Not Recovered/Not Resolved]
  - Muscle spasms [Not Recovered/Not Resolved]
  - Tremor [Not Recovered/Not Resolved]
  - Breast mass [Recovered/Resolved]
  - Pain in extremity [Not Recovered/Not Resolved]
